FAERS Safety Report 6786647-6 (Version None)
Quarter: 2010Q2

REPORT INFORMATION
  Report Type: 
  Country: None (occurrence: None)
  Receive Date: 20100623
  Receipt Date: 20100622
  Transmission Date: 20101027
  Serious: No
  Sender: FDA-Public Use
  Company Number: US-ROXANE LABORATORIES, INC.-2010-RO-00568RO

PATIENT
  Age: 61 Year
  Sex: Female

DRUGS (2)
  1. ROXICET [Suspect]
     Indication: ARTHRALGIA
     Route: 048
  2. HORMONES [Concomitant]

REACTIONS (3)
  - ACTIVITIES OF DAILY LIVING IMPAIRED [None]
  - DRUG INEFFECTIVE [None]
  - FEELING ABNORMAL [None]
